FAERS Safety Report 19919568 (Version 4)
Quarter: 2021Q4

REPORT INFORMATION
  Report Type: Report from Study
  Country: US (occurrence: US)
  Receive Date: 20211004
  Receipt Date: 20211204
  Transmission Date: 20220303
  Serious: No
  Sender: FDA-Public Use
  Company Number: NVSC2021US223599

PATIENT
  Sex: Male

DRUGS (2)
  1. TAFINLAR [Suspect]
     Active Substance: DABRAFENIB MESYLATE
     Indication: Product used for unknown indication
     Dosage: UNK
     Route: 048
     Dates: start: 20210924
  2. MEKINIST [Suspect]
     Active Substance: TRAMETINIB DIMETHYL SULFOXIDE
     Indication: Product used for unknown indication
     Dosage: UNK
     Route: 048
     Dates: start: 20210924

REACTIONS (12)
  - Oral herpes [Unknown]
  - Malnutrition [Unknown]
  - Blood pressure abnormal [Unknown]
  - Blood glucose abnormal [Unknown]
  - Dyspnoea [Unknown]
  - Abdominal pain upper [Unknown]
  - Cough [Unknown]
  - Rash [Unknown]
  - Body temperature increased [Unknown]
  - Constipation [Unknown]
  - Nausea [Unknown]
  - Epistaxis [Unknown]
